FAERS Safety Report 24990284 (Version 2)
Quarter: 2025Q2

REPORT INFORMATION
  Report Type: Report from Study
  Country: US (occurrence: US)
  Receive Date: 20250220
  Receipt Date: 20250424
  Transmission Date: 20250717
  Serious: Yes (Other)
  Sender: JOHNSON AND JOHNSON
  Company Number: US-JNJFOC-20250228204

PATIENT
  Age: 68 Year
  Sex: Male

DRUGS (2)
  1. SPRAVATO [Suspect]
     Active Substance: ESKETAMINE
     Indication: Depression
     Route: 045
     Dates: start: 20240805, end: 20250107
  2. SPRAVATO [Suspect]
     Active Substance: ESKETAMINE
     Dosage: ^56 MG, 2 TOTAL DOSES^
     Route: 045
     Dates: start: 20240730, end: 20240802

REACTIONS (14)
  - Hallucination, auditory [Unknown]
  - Seizure [Unknown]
  - Suicidal ideation [Unknown]
  - Overdose [Unknown]
  - Drug monitoring procedure incorrectly performed [Unknown]
  - Nasopharyngitis [Unknown]
  - Mental disorder [Unknown]
  - Thinking abnormal [Unknown]
  - Autoscopy [Unknown]
  - Muscle twitching [Unknown]
  - Hypertension [Unknown]
  - Insomnia [Unknown]
  - Feeling abnormal [Unknown]
  - Depression [Unknown]

NARRATIVE: CASE EVENT DATE: 20240101
